FAERS Safety Report 21919395 (Version 4)
Quarter: 2025Q2

REPORT INFORMATION
  Report Type: Report from Study
  Country: CA (occurrence: CA)
  Receive Date: 20230127
  Receipt Date: 20250423
  Transmission Date: 20250717
  Serious: Yes (Other)
  Sender: TAKEDA
  Company Number: CA-TAKEDA-2018TUS020509

PATIENT
  Age: 81 Year
  Sex: Female

DRUGS (29)
  1. VEDOLIZUMAB [Suspect]
     Active Substance: VEDOLIZUMAB
     Indication: Colitis ulcerative
  2. VEDOLIZUMAB [Suspect]
     Active Substance: VEDOLIZUMAB
     Dosage: 300 MILLIGRAM, Q4WEEKS
     Dates: start: 20180704
  3. VEDOLIZUMAB [Suspect]
     Active Substance: VEDOLIZUMAB
     Dosage: 300 MILLIGRAM, Q4WEEKS
  4. VEDOLIZUMAB [Suspect]
     Active Substance: VEDOLIZUMAB
     Dosage: 300 MILLIGRAM, Q4WEEKS
  5. VEDOLIZUMAB [Suspect]
     Active Substance: VEDOLIZUMAB
     Dosage: 300 MILLIGRAM, Q4WEEKS
  6. VEDOLIZUMAB [Suspect]
     Active Substance: VEDOLIZUMAB
     Dosage: 300 MILLIGRAM, Q4WEEKS
  7. VEDOLIZUMAB [Suspect]
     Active Substance: VEDOLIZUMAB
     Dosage: 300 MILLIGRAM, Q4WEEKS
  8. Cortiment [Concomitant]
     Dosage: 9 MILLIGRAM, TID
     Dates: start: 20160401
  9. MESALAMINE [Concomitant]
     Active Substance: MESALAMINE
     Dosage: UNK UNK, QD
     Dates: start: 20160404
  10. RISEDRONATE SODIUM [Concomitant]
     Active Substance: RISEDRONATE SODIUM
     Dosage: UNK UNK, MONTHLY
  11. LOSARTAN [Concomitant]
     Active Substance: LOSARTAN
  12. ASPIRIN [Concomitant]
     Active Substance: ASPIRIN
  13. Narise [Concomitant]
  14. ADALAT [Concomitant]
     Active Substance: NIFEDIPINE
  15. PROPAFENONE [Concomitant]
     Active Substance: PROPAFENONE
  16. METOPROLOL [Concomitant]
     Active Substance: METOPROLOL
  17. MINERALS\VITAMINS [Concomitant]
     Active Substance: MINERALS\VITAMINS
  18. TAMBOCOR [Concomitant]
     Active Substance: FLECAINIDE ACETATE
  19. DEMEROL [Concomitant]
     Active Substance: MEPERIDINE HYDROCHLORIDE
  20. OMNARIS [Concomitant]
     Active Substance: CICLESONIDE
  21. SULFASALAZINE [Concomitant]
     Active Substance: SULFASALAZINE
  22. FUROSEMIDE [Concomitant]
     Active Substance: FUROSEMIDE
  23. PERINDOPRIL [Concomitant]
     Active Substance: PERINDOPRIL
  24. COLCHICINE [Concomitant]
     Active Substance: COLCHICINE
  25. POTASSIUM CHLORIDE [Concomitant]
     Active Substance: POTASSIUM CHLORIDE
  26. VITAMIN D3 [Concomitant]
     Active Substance: CHOLECALCIFEROL
  27. ALBUTEROL [Concomitant]
     Active Substance: ALBUTEROL
  28. SYMBICORT [Concomitant]
     Active Substance: BUDESONIDE\FORMOTEROL FUMARATE DIHYDRATE
  29. RISEDRONATE SODIUM [Concomitant]
     Active Substance: RISEDRONATE SODIUM

REACTIONS (4)
  - Enterovesical fistula [Unknown]
  - Complication associated with device [Unknown]
  - Off label use [Unknown]
  - Gastroenteritis [Unknown]

NARRATIVE: CASE EVENT DATE: 20180704
